FAERS Safety Report 10704793 (Version 2)
Quarter: 2015Q1

REPORT INFORMATION
  Report Type: Spontaneous
  Country: US (occurrence: US)
  Receive Date: 20150112
  Receipt Date: 20150220
  Transmission Date: 20150721
  Serious: Yes (Death, Hospitalization, Other)
  Sender: FDA-Public Use
  Company Number: US-JNJFOC-20150106994

PATIENT
  Age: 61 Year
  Sex: Male

DRUGS (4)
  1. ASPIRIN. [Concomitant]
     Active Substance: ASPIRIN
  2. IMBRUVICA [Suspect]
     Active Substance: IBRUTINIB
     Indication: CHRONIC LYMPHOCYTIC LEUKAEMIA
     Route: 048
     Dates: start: 20141020, end: 20141224
  3. NORVASC [Concomitant]
     Active Substance: AMLODIPINE BESYLATE
     Dates: start: 20141022
  4. COZAAR [Concomitant]
     Active Substance: LOSARTAN POTASSIUM
     Dosage: UNK, SINCE AT LEAST AUG-2014

REACTIONS (5)
  - Hypokalaemia [Recovering/Resolving]
  - Leukocytosis [Recovering/Resolving]
  - Acute myocardial infarction [Unknown]
  - Cardiac arrest [Fatal]
  - Hypoxic-ischaemic encephalopathy [Not Recovered/Not Resolved]

NARRATIVE: CASE EVENT DATE: 201412
